FAERS Safety Report 8102227-4 (Version None)
Quarter: 2012Q1

REPORT INFORMATION
  Report Type: 
  Country: None (occurrence: None)
  Receive Date: 20120201
  Receipt Date: 20120117
  Transmission Date: 20120608
  Serious: Yes (Hospitalization, Other)
  Sender: FDA-Public Use
  Company Number: CZ-AMGEN-CZECT2012005063

PATIENT
  Age: 70 Year
  Sex: Male
  Weight: 120.5 kg

DRUGS (9)
  1. INDAPAMIDE W/PERINDOPRIL [Concomitant]
     Dosage: UNK
  2. SPIRIVA [Concomitant]
     Dosage: UNK
  3. METFORMIN HCL [Concomitant]
     Dosage: ^850^
  4. BERODUAL [Concomitant]
     Dosage: UNK
  5. ALLOPURINOL [Concomitant]
     Dosage: ^100^
  6. PRESTARIUM                         /00790701/ [Concomitant]
     Dosage: UNK
  7. HUMULIN N [Concomitant]
     Dosage: UNK
  8. ETANERCEPT [Suspect]
     Indication: RHEUMATOID ARTHRITIS
     Dosage: 50 MG, WEEKLY ON THURSDAYS
     Route: 058
     Dates: start: 20110104
  9. HUMULIN R [Concomitant]
     Dosage: UNK

REACTIONS (1)
  - VENOUS INSUFFICIENCY [None]
